FAERS Safety Report 9712364 (Version 1)
Quarter: 2013Q4

REPORT INFORMATION
  Report Type: Spontaneous
  Country: US (occurrence: US)
  Receive Date: 20131126
  Receipt Date: 20131126
  Transmission Date: 20140711
  Serious: No
  Sender: FDA-Public Use
  Company Number: US-BRISTOL-MYERS SQUIBB COMPANY-19174184

PATIENT
  Age: 61 Year
  Sex: Female
  Weight: 117.91 kg

DRUGS (3)
  1. BYDUREON [Suspect]
     Indication: TYPE 2 DIABETES MELLITUS
     Route: 058
     Dates: start: 20130806
  2. LANTUS [Suspect]
     Dosage: 1DF:60 UNITS AT BEDTIME
     Route: 058
  3. NOVOLOG [Suspect]
     Dosage: SLIDING SCALE AS NEEDED.
     Route: 058

REACTIONS (8)
  - Feeling abnormal [Unknown]
  - Injection site extravasation [Unknown]
  - Injection site haemorrhage [Unknown]
  - Slow speech [Recovering/Resolving]
  - Confusional state [Unknown]
  - Somnolence [Unknown]
  - Blood glucose increased [Recovering/Resolving]
  - Sensation of heaviness [Recovering/Resolving]
